FAERS Safety Report 10020572 (Version 2)
Quarter: 2014Q1

REPORT INFORMATION
  Report Type: Spontaneous
  Country: US (occurrence: US)
  Receive Date: 20140319
  Receipt Date: 20140319
  Transmission Date: 20141002
  Serious: Yes (Hospitalization)
  Sender: FDA-Public Use
  Company Number: CHPA2011US06258

PATIENT
  Age: 60 Year
  Sex: Female

DRUGS (4)
  1. PREVACID 24HR 15MG [Suspect]
     Indication: DYSPEPSIA
     Dosage: 30 MG, QD
     Route: 048
  2. PREVACID 24HR 15MG [Suspect]
     Indication: GASTROOESOPHAGEAL REFLUX DISEASE
     Dosage: 15 MG, BID
  3. PREVACID 24HR 15MG [Suspect]
     Indication: OFF LABEL USE
  4. TEGRETOL [Concomitant]
     Indication: EPILEPSY
     Dosage: UNK
     Dates: start: 1966

REACTIONS (4)
  - Aortic valve disease [Recovered/Resolved]
  - Incorrect drug administration duration [Unknown]
  - Therapeutic response unexpected [Unknown]
  - Incorrect dose administered [Unknown]
